FAERS Safety Report 17243157 (Version 1)
Quarter: 2020Q1

REPORT INFORMATION
  Report Type: Other
  Country: CA (occurrence: CA)
  Receive Date: 20200107
  Receipt Date: 20200107
  Transmission Date: 20200409
  Serious: Yes (Hospitalization, Other)
  Sender: FDA-Public Use
  Company Number: CA-INTERCEPT-PM2019002373

PATIENT
  Sex: Female

DRUGS (3)
  1. URSO [Concomitant]
     Active Substance: URSODIOL
     Indication: PRODUCT USED FOR UNKNOWN INDICATION
  2. OCALIVA [Suspect]
     Active Substance: OBETICHOLIC ACID
     Indication: PRIMARY BILIARY CHOLANGITIS
     Dosage: 5 MG, QD
     Route: 048
     Dates: start: 20181120
  3. OCALIVA [Suspect]
     Active Substance: OBETICHOLIC ACID
     Dosage: 10 MG, QD
     Route: 048
     Dates: start: 201905

REACTIONS (12)
  - Nausea [Unknown]
  - Feeling abnormal [Unknown]
  - Euphoric mood [Unknown]
  - Blood glucose increased [Unknown]
  - Hepatic encephalopathy [Unknown]
  - Constipation [Unknown]
  - Carbon dioxide increased [Unknown]
  - Hunger [Unknown]
  - Infection [Unknown]
  - Gastric ulcer [Unknown]
  - Confusional state [Unknown]
  - Diabetes mellitus [Unknown]

NARRATIVE: CASE EVENT DATE: 2018
